FAERS Safety Report 9387509 (Version 2)
Quarter: 2013Q3

REPORT INFORMATION
  Report Type: Spontaneous
  Country: JP (occurrence: JP)
  Receive Date: 20130708
  Receipt Date: 20130715
  Transmission Date: 20140515
  Serious: Yes (Hospitalization)
  Sender: FDA-Public Use
  Company Number: JP-BRACCO-007145

PATIENT
  Age: 78 Year
  Sex: Male

DRUGS (3)
  1. IOPAMIRON [Suspect]
     Indication: COMPUTERISED TOMOGRAM
     Route: 042
     Dates: start: 20130530, end: 20130530
  2. GASTER [Concomitant]
  3. URSODEOXYCHOLIC ACID [Concomitant]

REACTIONS (1)
  - Anaphylactic shock [Recovered/Resolved]
